FAERS Safety Report 10348875 (Version 1)
Quarter: 2014Q3

REPORT INFORMATION
  Report Type: Spontaneous
  Country: GB (occurrence: None)
  Receive Date: 20140725
  Receipt Date: 20140725
  Transmission Date: 20150326
  Serious: Yes (Other)
  Sender: FDA-Public Use
  Company Number: AUR-APL-2014-07888

PATIENT
  Age: 36 Year
  Sex: Female

DRUGS (2)
  1. LYMECYCLINE (LYMECYCLINE) [Concomitant]
     Active Substance: LYMECYCLINE
  2. LAMOTRIGINE 25 MG (LAMOTRIGINE) [Suspect]
     Active Substance: LAMOTRIGINE
     Indication: EPILEPSY
     Route: 048
     Dates: start: 20140523, end: 20140609

REACTIONS (5)
  - Skin exfoliation [None]
  - Pruritus [None]
  - Burning sensation [None]
  - Erythema [None]
  - Rash [None]

NARRATIVE: CASE EVENT DATE: 20140611
